FAERS Safety Report 18740498 (Version 1)
Quarter: 2021Q1

REPORT INFORMATION
  Report Type: Spontaneous
  Country: US (occurrence: US)
  Receive Date: 20210114
  Receipt Date: 20210114
  Transmission Date: 20210419
  Serious: Yes (Other)
  Sender: FDA-Public Use
  Company Number: None

PATIENT
  Age: 43 Year
  Sex: Male

DRUGS (1)
  1. LEXAPRO [Suspect]
     Active Substance: ESCITALOPRAM OXALATE
     Indication: DEPRESSION
     Dosage: ?
     Route: 048
     Dates: start: 20200715, end: 20210111

REACTIONS (7)
  - Abnormal behaviour [None]
  - Mania [None]
  - Personality change [None]
  - Mental disorder [None]
  - Anger [None]
  - Polydipsia [None]
  - Hypersexuality [None]
